FAERS Safety Report 9987988 (Version 1)
Quarter: 2014Q1

REPORT INFORMATION
  Report Type: Spontaneous
  Country: US (occurrence: US)
  Receive Date: 20140307
  Receipt Date: 20140307
  Transmission Date: 20141002
  Serious: Yes (Other)
  Sender: FDA-Public Use
  Company Number: US-ABBVIE-14P-163-1208154-00

PATIENT
  Age: 61 Year
  Sex: Female
  Weight: 56.75 kg

DRUGS (3)
  1. SYNTHROID [Suspect]
     Indication: HYPOTHYROIDISM
  2. SYNTHROID [Suspect]
  3. UNNAMED THYROID MEDICATION [Suspect]
     Indication: HYPOTHYROIDISM

REACTIONS (11)
  - Uterine leiomyoma [Recovered/Resolved]
  - Product substitution issue [Recovered/Resolved]
  - Haemoglobin decreased [Recovered/Resolved]
  - Rash [Not Recovered/Not Resolved]
  - Urticaria [Not Recovered/Not Resolved]
  - Dermatitis contact [Not Recovered/Not Resolved]
  - Flushing [Not Recovered/Not Resolved]
  - Pain of skin [Not Recovered/Not Resolved]
  - House dust allergy [Not Recovered/Not Resolved]
  - Arrhythmia [Recovered/Resolved]
  - Menorrhagia [None]
